FAERS Safety Report 8346640-9 (Version None)
Quarter: 2012Q2

REPORT INFORMATION
  Report Type: 
  Country: None (occurrence: None)
  Receive Date: 20120509
  Receipt Date: 20120504
  Transmission Date: 20120825
  Serious: Yes (Other)
  Sender: FDA-Public Use
  Company Number: PHEH2011US07319

PATIENT
  Sex: Female

DRUGS (4)
  1. CARDIOVASCULAR DRUGS [Concomitant]
     Route: 065
  2. PREMARIN [Concomitant]
  3. CALCITONIN SALMON [Suspect]
     Dosage: 1 DF, QD
     Route: 045
     Dates: end: 20110601
  4. FORTICAL [Suspect]
     Dosage: 200 MG, QD

REACTIONS (2)
  - BONE DENSITY DECREASED [None]
  - RHINITIS [None]
